FAERS Safety Report 24393399 (Version 1)
Quarter: 2024Q4

REPORT INFORMATION
  Report Type: Spontaneous
  Country: US (occurrence: US)
  Receive Date: 20241003
  Receipt Date: 20241003
  Transmission Date: 20250115
  Serious: No
  Sender: HARMONY BIOSCIENCES
  Company Number: US-HARMONY BIOSCIENCES-2024HMY00781

PATIENT

DRUGS (1)
  1. WAKIX [Suspect]
     Active Substance: PITOLISANT HYDROCHLORIDE
     Indication: Narcolepsy
     Dosage: UNK
     Dates: end: 20240315

REACTIONS (8)
  - Urticaria [Unknown]
  - Nausea [Unknown]
  - Emotional disorder [Unknown]
  - Anger [Unknown]
  - Confusional state [Unknown]
  - Tongue disorder [Unknown]
  - Rhinorrhoea [Unknown]
  - Bone pain [Unknown]
